FAERS Safety Report 8454187-4 (Version None)
Quarter: 2012Q2

REPORT INFORMATION
  Report Type: 
  Country: None (occurrence: None)
  Receive Date: 20120620
  Receipt Date: 20120612
  Transmission Date: 20120825
  Serious: Yes (Hospitalization)
  Sender: FDA-Public Use
  Company Number: SE-ABBOTT-12P-150-0940772-00

PATIENT
  Sex: Male

DRUGS (4)
  1. NORVIR [Suspect]
     Indication: HIV INFECTION
     Route: 048
     Dates: start: 20120307, end: 20120309
  2. INTELENCE [Suspect]
     Indication: HIV INFECTION
     Dates: start: 20120307, end: 20120309
  3. ISENTRESS [Suspect]
     Indication: HIV INFECTION
     Route: 048
     Dates: start: 20120307, end: 20120309
  4. PREZISTA [Suspect]
     Indication: HIV INFECTION
     Route: 048
     Dates: start: 20120307, end: 20120309

REACTIONS (2)
  - TRANSAMINASES INCREASED [None]
  - BODY TEMPERATURE INCREASED [None]
